FAERS Safety Report 9391997 (Version 2)
Quarter: 2013Q4

REPORT INFORMATION
  Report Type: Spontaneous
  Country: GB (occurrence: GB)
  Receive Date: 20130709
  Receipt Date: 20131004
  Transmission Date: 20140711
  Serious: Yes (Other)
  Sender: FDA-Public Use
  Company Number: GB-ACTAVIS-2013-11992

PATIENT
  Age: 71 Year
  Sex: Female

DRUGS (4)
  1. EPIRUBICIN HYDROCHLORIDE (UNKNOWN) [Suspect]
     Indication: PRODUCT USED FOR UNKNOWN INDICATION
     Dosage: UNK
     Route: 065
  2. CYCLOPHOSPHAMIDE (UNKNOWN) [Suspect]
     Indication: PRODUCT USED FOR UNKNOWN INDICATION
     Dosage: UNK
     Route: 065
  3. HERCEPTIN [Suspect]
     Indication: BREAST CANCER
     Dosage: 546 MG, 3/WEEK
     Route: 042
     Dates: start: 20130214
  4. HERCEPTIN [Suspect]
     Dosage: 300 MG, UNK
     Route: 065

REACTIONS (12)
  - Fall [Unknown]
  - Asthenia [Not Recovered/Not Resolved]
  - Local swelling [Unknown]
  - Dyspnoea [Unknown]
  - Cough [Unknown]
  - Insomnia [Not Recovered/Not Resolved]
  - Diarrhoea [Not Recovered/Not Resolved]
  - Dry skin [Not Recovered/Not Resolved]
  - Arthralgia [Not Recovered/Not Resolved]
  - Joint swelling [Unknown]
  - Joint swelling [Unknown]
  - Fatigue [Unknown]
